FAERS Safety Report 9456598 (Version 1)
Quarter: 2013Q3

REPORT INFORMATION
  Report Type: Spontaneous
  Country: FR (occurrence: None)
  Receive Date: 20130809
  Receipt Date: 20130809
  Transmission Date: 20140515
  Serious: Yes (Hospitalization)
  Sender: FDA-Public Use
  Company Number: CLINIGEN-003052

PATIENT
  Age: 26 Year
  Sex: Female

DRUGS (1)
  1. FOSCAVIR [Suspect]
     Indication: CYTOMEGALOVIRUS INFECTION
     Route: 042
     Dates: start: 20130611, end: 20130620

REACTIONS (3)
  - Renal tubular disorder [None]
  - Blood potassium decreased [None]
  - Acute respiratory distress syndrome [None]
